FAERS Safety Report 6310555-8 (Version None)
Quarter: 2009Q3

REPORT INFORMATION
  Report Type: 
  Country: None (occurrence: None)
  Receive Date: 20090811
  Receipt Date: 20090604
  Transmission Date: 20100115
  Serious: No
  Sender: FDA-Public Use
  Company Number: 1000006657

PATIENT
  Age: 52 Year
  Sex: Female

DRUGS (12)
  1. SAVELLA [Suspect]
     Indication: FIBROMYALGIA
     Dosage: SEE IMAGE
     Route: 048
     Dates: start: 20090523, end: 20090523
  2. SAVELLA [Suspect]
     Indication: FIBROMYALGIA
     Dosage: SEE IMAGE
     Route: 048
     Dates: start: 20090524, end: 20090525
  3. SAVELLA [Suspect]
     Indication: FIBROMYALGIA
     Dosage: SEE IMAGE
     Route: 048
     Dates: start: 20090526, end: 20090529
  4. SAVELLA [Suspect]
     Indication: FIBROMYALGIA
     Dosage: SEE IMAGE
     Route: 048
     Dates: start: 20090530
  5. CLONAZEPAM [Concomitant]
  6. ZOLPIDEM [Concomitant]
  7. MELATONIN [Concomitant]
  8. PEPCID [Concomitant]
  9. GAS-X [Concomitant]
  10. METAMUCIL [Concomitant]
  11. VITAMIN D [Concomitant]
  12. BIOTIN [Concomitant]

REACTIONS (2)
  - PAIN IN EXTREMITY [None]
  - WEIGHT DECREASED [None]
